FAERS Safety Report 8044852-5 (Version None)
Quarter: 2012Q1

REPORT INFORMATION
  Report Type: 
  Country: None (occurrence: None)
  Receive Date: 20120113
  Receipt Date: 20120105
  Transmission Date: 20120608
  Serious: Yes (Hospitalization)
  Sender: FDA-Public Use
  Company Number: US-JNJFOC-20111209539

PATIENT
  Sex: Male
  Weight: 100.47 kg

DRUGS (8)
  1. INFLIXIMAB, RECOMBINANT [Suspect]
     Indication: INFLAMMATORY BOWEL DISEASE
     Route: 042
     Dates: start: 20050221, end: 20060602
  2. ANTIBIOTICS [Concomitant]
     Indication: INFLAMMATORY BOWEL DISEASE
  3. THALIDOMIDE [Concomitant]
  4. ATIVAN [Concomitant]
  5. BACTROBAN [Concomitant]
     Route: 061
  6. MIRALAX [Concomitant]
  7. LIDOCAINE [Concomitant]
     Route: 061
  8. PERCOCET [Concomitant]

REACTIONS (1)
  - PILONIDAL CYST [None]
